FAERS Safety Report 4807610-8 (Version None)
Quarter: 2005Q4

REPORT INFORMATION
  Report Type: 
  Country: None (occurrence: None)
  Receive Date: 20051024
  Receipt Date: 20050822
  Transmission Date: 20060501
  Serious: Yes (Death, Other)
  Sender: FDA-Public Use
  Company Number: DE-BRISTOL-MYERS SQUIBB COMPANY-13155643

PATIENT

DRUGS (4)
  1. IFOSFAMIDE [Suspect]
     Indication: SARCOMA
     Route: 042
  2. DAUNOXOME [Suspect]
     Indication: SARCOMA
     Route: 042
  3. LEUKINE [Concomitant]
  4. MESNA [Concomitant]
     Route: 042

REACTIONS (1)
  - NEUTROPENIC SEPSIS [None]
